FAERS Safety Report 12805352 (Version 1)
Quarter: 2016Q4

REPORT INFORMATION
  Report Type: Spontaneous
  Country: US (occurrence: US)
  Receive Date: 20161004
  Receipt Date: 20161004
  Transmission Date: 20170207
  Serious: Yes (Hospitalization, Other)
  Sender: FDA-Public Use
  Company Number: US-BTG INTERNATIONAL LTD-BTG01071

PATIENT

DRUGS (4)
  1. MIRAPEX [Concomitant]
     Active Substance: PRAMIPEXOLE DIHYDROCHLORIDE
     Indication: PRODUCT USED FOR UNKNOWN INDICATION
  2. CROFAB [Suspect]
     Active Substance: CROTALIDAE POLYVALENT IMMUNE FAB (OVINE)
     Indication: SNAKE BITE
     Dosage: 5 DOSES WITH 6 VIALS PER BAG
     Dates: start: 20160917
  3. CROFAB [Suspect]
     Active Substance: CROTALIDAE POLYVALENT IMMUNE FAB (OVINE)
     Dosage: 4 ADDITIONAL DOSES, UNK
     Dates: start: 20160918
  4. SILVADENE [Concomitant]
     Active Substance: SILVER SULFADIAZINE
     Indication: WOUND TREATMENT
     Dosage: UNK

REACTIONS (4)
  - Peripheral swelling [Unknown]
  - Blood fibrinogen decreased [Unknown]
  - Blood creatinine abnormal [Not Recovered/Not Resolved]
  - Debridement [Unknown]

NARRATIVE: CASE EVENT DATE: 201609
